FAERS Safety Report 4699145-0 (Version None)
Quarter: 2005Q2

REPORT INFORMATION
  Report Type: 
  Country: None (occurrence: None)
  Receive Date: 20050623
  Receipt Date: 20050623
  Transmission Date: 20051028
  Serious: No
  Sender: FDA-Public Use
  Company Number: None

PATIENT
  Age: 67 Year
  Weight: 65.7716 kg

DRUGS (1)
  1. BEXTRA [Suspect]
     Indication: ECZEMA
     Dosage: 1 PER DAY
     Dates: start: 20050107, end: 20050310

REACTIONS (2)
  - ORAL SOFT TISSUE DISORDER [None]
  - RASH ERYTHEMATOUS [None]
